FAERS Safety Report 21299943 (Version 1)
Quarter: 2022Q3

REPORT INFORMATION
  Report Type: Spontaneous
  Country: US (occurrence: US)
  Receive Date: 20220906
  Receipt Date: 20220906
  Transmission Date: 20221027
  Serious: No
  Sender: FDA-Public Use
  Company Number: US-ALKERMES INC.-ALK-2022-004294

PATIENT
  Age: 10 Year
  Sex: Male

DRUGS (1)
  1. LYBALVI [Suspect]
     Active Substance: OLANZAPINE\SAMIDORPHAN L-MALATE
     Indication: Autism spectrum disorder
     Dosage: 5/10 MILLIGRAM, QD
     Route: 048

REACTIONS (1)
  - Off label use [Not Recovered/Not Resolved]
